FAERS Safety Report 8471812-2 (Version None)
Quarter: 2012Q2

REPORT INFORMATION
  Report Type: 
  Country: None (occurrence: None)
  Receive Date: 20120627
  Receipt Date: 20110301
  Transmission Date: 20120825
  Serious: Yes (Other)
  Sender: FDA-Public Use
  Company Number: JP-ROCHE-764578

PATIENT
  Sex: Male
  Weight: 13.9 kg

DRUGS (35)
  1. ACTEMRA [Suspect]
     Indication: JUVENILE ARTHRITIS
     Route: 041
     Dates: start: 20101122, end: 20111026
  2. ACTEMRA [Suspect]
     Route: 041
     Dates: start: 20110131, end: 20110214
  3. ACTEMRA [Suspect]
     Dosage: DOSE REDUCED
     Route: 041
  4. PREDNISOLONE [Suspect]
     Route: 048
     Dates: start: 20110609, end: 20110706
  5. ASPARA K [Concomitant]
     Route: 048
     Dates: start: 20101108, end: 20101112
  6. ASPARA K [Concomitant]
     Route: 048
     Dates: start: 20101113, end: 20101117
  7. SEPAMIT [Concomitant]
     Route: 048
     Dates: start: 20101118, end: 20101121
  8. PREDNISOLONE [Suspect]
     Route: 048
     Dates: start: 20110512, end: 20110608
  9. PREDNISOLONE [Suspect]
     Route: 048
  10. PRAVASTATIN SODIUM [Suspect]
     Indication: HYPERCHOLESTEROLAEMIA
     Dosage: FORM: PERORAL AGENT
     Route: 048
  11. NEORAL [Concomitant]
     Dosage: FORM: PERORAL AGENT
     Route: 048
  12. LAXOBERON [Concomitant]
     Dosage: DOSE: 6 GTT, FORM: PERORAL LIQUID PREPARATION
     Route: 048
     Dates: start: 20101117, end: 20101213
  13. PREDNISOLONE [Suspect]
     Indication: JUVENILE ARTHRITIS
     Dosage: FORM: PERORAL AGENT
     Route: 048
     Dates: start: 20101103, end: 20101220
  14. PREDNISOLONE [Suspect]
     Route: 048
     Dates: start: 20101221, end: 20110104
  15. METHOTREXATE [Suspect]
     Indication: JUVENILE ARTHRITIS
     Route: 048
     Dates: start: 20110130, end: 20110130
  16. IBRUPROFEN [Concomitant]
     Dosage: FORM: PERORAL AGENT
     Route: 048
  17. FOLIAMIN [Concomitant]
     Dates: start: 20110131
  18. PREDNISOLONE [Suspect]
     Route: 048
     Dates: start: 20110317, end: 20110413
  19. ASPARA K [Concomitant]
     Route: 048
     Dates: start: 20101101, end: 20101107
  20. PREDNISOLONE [Suspect]
     Route: 048
     Dates: start: 20110105, end: 20110118
  21. PREDNISOLONE [Suspect]
     Route: 048
     Dates: start: 20110414, end: 20110511
  22. IBRUPROFEN [Concomitant]
     Route: 048
     Dates: start: 20101202, end: 20101208
  23. LACTULOSE [Concomitant]
     Route: 048
  24. MAGNESIUM OXIDE [Concomitant]
     Dosage: STOP DATE: 2010, FORM : PERORAL AGENT
     Route: 048
  25. PREDNISOLONE [Suspect]
     Route: 048
     Dates: start: 20110119, end: 20110202
  26. METHOTREXATE [Suspect]
     Route: 048
     Dates: start: 20110205, end: 20110205
  27. PREDNISOLONE [Suspect]
     Route: 048
     Dates: start: 20110203, end: 20110206
  28. PREDNISOLONE [Suspect]
     Route: 048
     Dates: start: 20110207, end: 20110316
  29. LISINOPRIL [Suspect]
     Indication: HYPERTENSION
     Dosage: FORM: PERORAL AGENT
     Route: 048
     Dates: start: 20101106, end: 20101214
  30. METHOTREXATE [Suspect]
     Route: 048
     Dates: start: 20110212
  31. SEPAMIT [Concomitant]
     Route: 048
     Dates: start: 20101105, end: 20101109
  32. ACTEMRA [Suspect]
     Route: 041
     Dates: start: 20101220, end: 20110117
  33. IBRUPROFEN [Concomitant]
     Route: 048
     Dates: start: 20101209, end: 20101214
  34. SEPAMIT [Concomitant]
     Dosage: FORM: PERORAL AGENT
     Route: 048
     Dates: start: 20101110, end: 20101113
  35. SEPAMIT [Concomitant]
     Route: 048
     Dates: start: 20101114, end: 20101117

REACTIONS (6)
  - BRONCHITIS [None]
  - ERYTHEMA MULTIFORME [None]
  - PYODERMA [None]
  - IRON DEFICIENCY ANAEMIA [None]
  - UPPER RESPIRATORY TRACT INFLAMMATION [None]
  - ARTHRITIS [None]
